FAERS Safety Report 25093494 (Version 1)
Quarter: 2025Q1

REPORT INFORMATION
  Report Type: Report from Study
  Country: TR (occurrence: TR)
  Receive Date: 20250319
  Receipt Date: 20250319
  Transmission Date: 20250409
  Serious: Yes (Other)
  Sender: ROCHE
  Company Number: TR-ROCHE-10000229718

PATIENT

DRUGS (2)
  1. MYCOPHENOLATE MOFETIL [Suspect]
     Active Substance: MYCOPHENOLATE MOFETIL
     Indication: Prophylaxis against graft versus host disease
     Route: 065
  2. METHOTREXATE [Suspect]
     Active Substance: METHOTREXATE
     Indication: Prophylaxis against graft versus host disease
     Route: 065

REACTIONS (16)
  - Bronchopulmonary aspergillosis [Unknown]
  - Hepatosplenic candidiasis [Unknown]
  - Pneumonia fungal [Unknown]
  - Osteomyelitis [Unknown]
  - Tongue abscess [Unknown]
  - Systemic candida [Unknown]
  - Fungaemia [Unknown]
  - Kidney infection [Unknown]
  - Candida retinitis [Unknown]
  - Fungaemia [Unknown]
  - Skin infection [Unknown]
  - Mucormycosis [Unknown]
  - Fungal skin infection [Unknown]
  - Central nervous system fungal infection [Unknown]
  - Eye infection fungal [Unknown]
  - Cytomegalovirus infection [Unknown]
